FAERS Safety Report 16475295 (Version 2)
Quarter: 2019Q2

REPORT INFORMATION
  Report Type: Report from Study
  Country: MX (occurrence: MX)
  Receive Date: 20190625
  Receipt Date: 20190627
  Transmission Date: 20190711
  Serious: Yes (Death)
  Sender: FDA-Public Use
  Company Number: PHHY2019MX145765

PATIENT
  Sex: Female
  Weight: 60 kg

DRUGS (2)
  1. GALVUS MET [Suspect]
     Active Substance: METFORMIN HYDROCHLORIDE\VILDAGLIPTIN
     Indication: DIABETES MELLITUS
     Dosage: 1 DF, BID (METFORMIN 500 MG, VILDAGLIPTIN 50 MG)
     Route: 048
     Dates: end: 20190418
  2. GALVUS MET [Suspect]
     Active Substance: METFORMIN HYDROCHLORIDE\VILDAGLIPTIN
     Dosage: 2 DF, (METFORMIN 500 MG, VILDAGLIPTIN 50 MG) QD
     Route: 048
     Dates: start: 20190418

REACTIONS (1)
  - Hypophagia [Fatal]
